FAERS Safety Report 21520180 (Version 1)
Quarter: 2022Q4

REPORT INFORMATION
  Report Type: Report from Study
  Country: US (occurrence: None)
  Receive Date: 20221028
  Receipt Date: 20221028
  Transmission Date: 20230112
  Serious: Yes (Death)
  Sender: FDA-Public Use
  Company Number: US-Merck Healthcare KGaA-9360747

PATIENT
  Age: 59 Year
  Sex: Male

DRUGS (1)
  1. SEROSTIM [Suspect]
     Active Substance: SOMATROPIN
     Indication: Cachexia
     Route: 058
     Dates: start: 20211005, end: 20220921

REACTIONS (1)
  - Death [Fatal]

NARRATIVE: CASE EVENT DATE: 20220921
